FAERS Safety Report 4952188-1 (Version None)
Quarter: 2006Q1

REPORT INFORMATION
  Report Type: 
  Country: None (occurrence: None)
  Receive Date: 20060320
  Receipt Date: 20060309
  Transmission Date: 20060701
  Serious: Yes (Hospitalization, Other)
  Sender: FDA-Public Use
  Company Number: 2006-01-0534

PATIENT
  Age: 59 Year
  Sex: Male

DRUGS (8)
  1. PEG-INTRON [Suspect]
     Indication: HEPATITIS C
     Dosage: 100 MCG QW SUBCUTANEOUS
     Route: 058
     Dates: start: 20051121, end: 20051202
  2. REBETOL [Suspect]
     Indication: HEPATITIS C
     Dosage: 800 MG ORAL
     Route: 048
     Dates: start: 20051121, end: 20051202
  3. ISOSORBIDE MONONITRATE TABLETS [Concomitant]
  4. GASTER TABLETS [Concomitant]
  5. NORVASC [Concomitant]
  6. RENIVACE TABLETS [Concomitant]
  7. BAYASPIRIN (ASPIRIN) TABLETS [Concomitant]
  8. WARFARIN SODIUM [Concomitant]

REACTIONS (10)
  - AMNESIA [None]
  - BACK INJURY [None]
  - BLOOD PRESSURE DECREASED [None]
  - DIZZINESS [None]
  - EPILEPSY [None]
  - FALL [None]
  - HAEMORRHAGE SUBCUTANEOUS [None]
  - HEAD INJURY [None]
  - LOSS OF CONSCIOUSNESS [None]
  - TIBIA FRACTURE [None]
